FAERS Safety Report 20390274 (Version 1)
Quarter: 2022Q1

REPORT INFORMATION
  Report Type: Spontaneous
  Country: AU (occurrence: AU)
  Receive Date: 20220128
  Receipt Date: 20220128
  Transmission Date: 20220423
  Serious: Yes (Other)
  Sender: FDA-Public Use
  Company Number: AU-NOVARTISPH-NVSC2022AU017256

PATIENT
  Sex: Male

DRUGS (6)
  1. NILOTINIB [Suspect]
     Active Substance: NILOTINIB
     Indication: Product used for unknown indication
     Dosage: UNK
     Route: 065
     Dates: start: 20160616, end: 202010
  2. GLIVEC [Suspect]
     Active Substance: IMATINIB MESYLATE
     Indication: Product used for unknown indication
     Dosage: UNK
     Route: 065
     Dates: start: 20201030, end: 20210415
  3. DASATINIB [Suspect]
     Active Substance: DASATINIB
     Indication: Product used for unknown indication
     Dosage: UNK
     Route: 065
     Dates: start: 202104
  4. EZETIMIBE [Suspect]
     Active Substance: EZETIMIBE
     Indication: Chronic myeloid leukaemia
     Dosage: UNK
     Route: 065
  5. MICARDIS [Suspect]
     Active Substance: TELMISARTAN
     Indication: Product used for unknown indication
     Dosage: UNK
     Route: 065
  6. ASPIRIN [Suspect]
     Active Substance: ASPIRIN
     Indication: Product used for unknown indication
     Route: 065

REACTIONS (8)
  - Myocardial ischaemia [Unknown]
  - Adverse event [Unknown]
  - Lethargy [Unknown]
  - Disturbance in attention [Unknown]
  - Bone pain [Unknown]
  - Arthralgia [Unknown]
  - Pain [Unknown]
  - Cognitive disorder [Unknown]
